FAERS Safety Report 20945618 (Version 2)
Quarter: 2025Q2

REPORT INFORMATION
  Report Type: Spontaneous
  Country: IT (occurrence: IT)
  Receive Date: 20220610
  Receipt Date: 20250624
  Transmission Date: 20250717
  Serious: Yes (Congenital Anomaly)
  Sender: MYLAN
  Company Number: IT-ViiV Healthcare Limited-IT2022GSK084180

PATIENT
  Sex: Female
  Weight: 3.1 kg

DRUGS (5)
  1. NEVIRAPINE [Suspect]
     Active Substance: NEVIRAPINE
     Indication: HIV infection
  2. TENOFOVIR [Suspect]
     Active Substance: TENOFOVIR
     Indication: HIV infection
  3. LAMIVUDINE [Suspect]
     Active Substance: LAMIVUDINE
     Indication: HIV infection
  4. ZIDOVUDINE [Suspect]
     Active Substance: ZIDOVUDINE
     Indication: HIV infection
  5. RALTEGRAVIR [Suspect]
     Active Substance: RALTEGRAVIR
     Indication: HIV infection

REACTIONS (7)
  - Dextrocardia [Recovered/Resolved]
  - Toxicity to various agents [Unknown]
  - Mass [Unknown]
  - Thymus enlargement [Recovered/Resolved]
  - Mediastinal shift [Recovered/Resolved]
  - Lung disorder [Recovered/Resolved]
  - Foetal exposure during pregnancy [Recovered/Resolved]
